FAERS Safety Report 5634107-8 (Version None)
Quarter: 2008Q1

REPORT INFORMATION
  Report Type: 
  Country: None (occurrence: None)
  Receive Date: 20080219
  Receipt Date: 20080206
  Transmission Date: 20080703
  Serious: Yes (Death)
  Sender: FDA-Public Use
  Company Number: 2007002253

PATIENT
  Age: 63 Year
  Sex: Male

DRUGS (1)
  1. ERLOTINIB (ERLOTINIB HCL (TABLET) (ERLOTINIB HCL) [Suspect]
     Indication: NON-SMALL CELL LUNG CANCER
     Dosage: (150 MG, QD), ORAL
     Route: 048
     Dates: start: 20071008, end: 20071029

REACTIONS (1)
  - SEPSIS [None]
